FAERS Safety Report 25158205 (Version 1)
Quarter: 2025Q2

REPORT INFORMATION
  Report Type: Spontaneous
  Country: US (occurrence: US)
  Receive Date: 20250404
  Receipt Date: 20250404
  Transmission Date: 20250716
  Serious: No
  Sender: ROCHE
  Company Number: US-ROCHE-10000244686

PATIENT
  Sex: Female

DRUGS (20)
  1. ESBRIET [Suspect]
     Active Substance: PIRFENIDONE
     Indication: Idiopathic pulmonary fibrosis
     Route: 065
  2. AMLODIPINE [Concomitant]
     Active Substance: AMLODIPINE BESYLATE
  3. AMOXICILLIN [Concomitant]
     Active Substance: AMOXICILLIN
  4. ASPIRIN [Concomitant]
     Active Substance: ASPIRIN
  5. ATOVAQUONE [Concomitant]
     Active Substance: ATOVAQUONE
  6. BISOPROLOL [Concomitant]
     Active Substance: BISOPROLOL
  7. BRILINTA [Concomitant]
     Active Substance: TICAGRELOR
  8. CETIRIZINE [Concomitant]
     Active Substance: CETIRIZINE HYDROCHLORIDE
  9. EZETIMIBE [Concomitant]
     Active Substance: EZETIMIBE
  10. FENOFIBRATE [Concomitant]
     Active Substance: FENOFIBRATE
  11. FUROSEMIDE [Concomitant]
     Active Substance: FUROSEMIDE
  12. GABAPENTIN [Concomitant]
     Active Substance: GABAPENTIN
  13. ISOSORBIDE [Concomitant]
     Active Substance: ISOSORBIDE
  14. LATANOPROST [Concomitant]
     Active Substance: LATANOPROST
  15. LOSARTAN [Concomitant]
     Active Substance: LOSARTAN
  16. METFORMIN [Concomitant]
     Active Substance: METFORMIN HYDROCHLORIDE
  17. MONTELUKAST [Concomitant]
     Active Substance: MONTELUKAST
  18. PANTOPRAZOLE [Concomitant]
     Active Substance: PANTOPRAZOLE
  19. PREDNISONE [Concomitant]
     Active Substance: PREDNISONE
  20. ROSUVASTATIN [Concomitant]
     Active Substance: ROSUVASTATIN

REACTIONS (2)
  - Wrong technique in product usage process [Unknown]
  - No adverse event [Unknown]
